APPROVED DRUG PRODUCT: FAMOTIDINE
Active Ingredient: FAMOTIDINE
Strength: 20MG
Dosage Form/Route: TABLET;ORAL
Application: A075805 | Product #001 | TE Code: AB
Applicant: CARLSBAD TECHNOLOGY INC
Approved: Apr 16, 2001 | RLD: No | RS: No | Type: RX